FAERS Safety Report 4987366-9 (Version None)
Quarter: 2006Q2

REPORT INFORMATION
  Report Type: 
  Country: None (occurrence: None)
  Receive Date: 20060424
  Receipt Date: 20060418
  Transmission Date: 20061013
  Serious: Yes (Other)
  Sender: FDA-Public Use
  Company Number: 2006AL001025

PATIENT
  Sex: Female

DRUGS (1)
  1. NYSTATIN + TRIAMCINOLONE ACETONIDE CREAM USP, 100,000 UNITS/G; 0.1% (A [Suspect]
     Indication: RASH
     Dosage: TOP
     Route: 061
     Dates: start: 20040101, end: 20050301

REACTIONS (13)
  - ABDOMINAL DISTENSION [None]
  - CRYING [None]
  - CUSHING'S SYNDROME [None]
  - DEPRESSION [None]
  - FATIGUE [None]
  - HEADACHE [None]
  - LOCALISED OEDEMA [None]
  - MOOD ALTERED [None]
  - SCARLET FEVER [None]
  - SKIN STRIAE [None]
  - SWELLING FACE [None]
  - UPPER RESPIRATORY TRACT INFECTION [None]
  - WEIGHT INCREASED [None]
